FAERS Safety Report 12342867 (Version 1)
Quarter: 2016Q2

REPORT INFORMATION
  Report Type: Other
  Country: DE (occurrence: DE)
  Receive Date: 20160506
  Receipt Date: 20160506
  Transmission Date: 20160815
  Serious: Yes (Hospitalization)
  Sender: FDA-Public Use
  Company Number: DE-SHIRE-DE201605116

PATIENT
  Sex: Female
  Weight: 38 kg

DRUGS (4)
  1. PREDNISOLONE. [Concomitant]
     Active Substance: PREDNISOLONE
     Indication: PRODUCT USED FOR UNKNOWN INDICATION
     Dosage: 7.5 MG, 1X/DAY:QD
  2. KREON 25000 [Concomitant]
     Active Substance: PANCRELIPASE
     Indication: PRODUCT USED FOR UNKNOWN INDICATION
     Dosage: UNK UNK, 1 MORNING AND EVENING, 2 AT MIDDAY (AND AS NEEDED)
     Route: 048
  3. ELIQUIS [Concomitant]
     Active Substance: APIXABAN
     Indication: PRODUCT USED FOR UNKNOWN INDICATION
     Dosage: 5.0 MG, UNKNOWN
     Route: 048
     Dates: start: 20160317
  4. REVESTIVE [Suspect]
     Active Substance: TEDUGLUTIDE
     Indication: SHORT-BOWEL SYNDROME
     Dosage: 0.2 ML, 1X/DAY:QD
     Route: 058
     Dates: start: 20151210

REACTIONS (3)
  - Malaise [Unknown]
  - Vomiting [Unknown]
  - Transaminases increased [Unknown]

NARRATIVE: CASE EVENT DATE: 20160412
